FAERS Safety Report 25084983 (Version 1)
Quarter: 2025Q1

REPORT INFORMATION
  Report Type: Spontaneous
  Country: US (occurrence: US)
  Receive Date: 20250317
  Receipt Date: 20250317
  Transmission Date: 20250409
  Serious: No
  Sender: BAYER HEALTHCARE PHARMACEUTICALS INC.
  Company Number: US-BAYER-2025A035881

PATIENT
  Age: 31 Year
  Sex: Female

DRUGS (3)
  1. MIRENA [Suspect]
     Active Substance: LEVONORGESTREL
     Indication: Heavy menstrual bleeding
     Dosage: 20?G/DAY
     Route: 015
     Dates: start: 20240225
  2. MIRENA [Suspect]
     Active Substance: LEVONORGESTREL
     Indication: Endometrial cancer
  3. MIRENA [Suspect]
     Active Substance: LEVONORGESTREL
     Indication: Hyperplasia

REACTIONS (1)
  - Weight increased [None]
